FAERS Safety Report 9380507 (Version 2)
Quarter: 2013Q3

REPORT INFORMATION
  Report Type: Spontaneous
  Country: FR (occurrence: None)
  Receive Date: 20130628
  Receipt Date: 20130702
  Transmission Date: 20140515
  Serious: Yes (Hospitalization, Other)
  Sender: FDA-Public Use
  Company Number: AUR-APL-2013-05320

PATIENT
  Age: 64 Year
  Sex: Female

DRUGS (5)
  1. METFORMIN [Suspect]
     Indication: PRODUCT USED FOR UNKNOWN INDICATION
     Route: 048
     Dates: end: 20130425
  2. TRIATEC [Suspect]
     Indication: PRODUCT USED FOR UNKNOWN INDICATION
     Route: 048
     Dates: end: 20130426
  3. PAMIDRONATE DISODIUM [Suspect]
     Indication: PRODUCT USED FOR UNKNOWN INDICATION
     Route: 042
     Dates: start: 20130410, end: 20130410
  4. VISIPAQUE (IODIXANOL) [Suspect]
     Indication: PRODUCT USED FOR UNKNOWN INDICATION
     Route: 042
     Dates: start: 20130311, end: 20130411
  5. FEMARA [Suspect]
     Indication: PRODUCT USED FOR UNKNOWN INDICATION
     Route: 048
     Dates: end: 20130422

REACTIONS (7)
  - Drug reaction with eosinophilia and systemic symptoms [None]
  - Atrial fibrillation [None]
  - Epstein-Barr virus infection [None]
  - Hypotension [None]
  - Renal impairment [None]
  - General physical health deterioration [None]
  - Histiocytosis haematophagic [None]
